FAERS Safety Report 16099710 (Version 1)
Quarter: 2019Q1

REPORT INFORMATION
  Report Type: Spontaneous
  Country: US (occurrence: US)
  Receive Date: 20190321
  Receipt Date: 20190321
  Transmission Date: 20190418
  Serious: Yes (Other)
  Sender: FDA-Public Use
  Company Number: US-PFIZER INC-2019115352

PATIENT
  Sex: Female

DRUGS (4)
  1. GABAPENTIN. [Suspect]
     Active Substance: GABAPENTIN
     Dosage: 200 MG, 3X/DAY
     Dates: start: 2019, end: 2019
  2. GABAPENTIN. [Suspect]
     Active Substance: GABAPENTIN
     Indication: CYSTITIS INTERSTITIAL
     Dosage: UNK
     Dates: start: 201811, end: 201812
  3. GABAPENTIN. [Suspect]
     Active Substance: GABAPENTIN
     Dosage: 200 MG, 2X/DAY
     Dates: start: 2019, end: 2019
  4. GABAPENTIN. [Suspect]
     Active Substance: GABAPENTIN
     Dosage: 100 MG, 2X/DAY
     Dates: start: 201901, end: 2019

REACTIONS (12)
  - Dry mouth [Unknown]
  - Drug intolerance [Unknown]
  - Impatience [Unknown]
  - Drug ineffective for unapproved indication [Unknown]
  - Fall [Unknown]
  - Feeling abnormal [Unknown]
  - Anxiety [Unknown]
  - Impaired driving ability [Unknown]
  - Head injury [Unknown]
  - Palpitations [Unknown]
  - Loss of consciousness [Unknown]
  - Executive dysfunction [Unknown]
